FAERS Safety Report 4961182-6 (Version None)
Quarter: 2006Q1

REPORT INFORMATION
  Report Type: 
  Country: None (occurrence: None)
  Receive Date: 20060201
  Receipt Date: 20051202
  Transmission Date: 20060701
  Serious: No
  Sender: FDA-Public Use
  Company Number: 2005PV005393

PATIENT
  Sex: Male

DRUGS (1)
  1. BYETTA [Suspect]
     Dosage: 10 MCG
     Dates: start: 20050826, end: 20051101

REACTIONS (2)
  - DRUG EFFECT DECREASED [None]
  - INJECTION SITE URTICARIA [None]
